FAERS Safety Report 11904381 (Version 1)
Quarter: 2016Q1

REPORT INFORMATION
  Report Type: Spontaneous
  Country: US (occurrence: US)
  Receive Date: 20160108
  Receipt Date: 20160108
  Transmission Date: 20160526
  Serious: No
  Sender: FDA-Public Use
  Company Number: US-ROCHE-1621493

PATIENT
  Age: 53 Year
  Sex: Female

DRUGS (2)
  1. RITUXAN [Suspect]
     Active Substance: RITUXIMAB
     Indication: RHEUMATOID ARTHRITIS
     Route: 065
     Dates: start: 20150805, end: 20150805
  2. METHOTREXATE [Concomitant]
     Active Substance: METHOTREXATE
     Indication: RHEUMATOID ARTHRITIS
     Route: 058
     Dates: start: 20150114

REACTIONS (3)
  - Pharyngeal oedema [Unknown]
  - Oropharyngeal pain [Recovering/Resolving]
  - Vomiting [Unknown]

NARRATIVE: CASE EVENT DATE: 20150805
